FAERS Safety Report 24104343 (Version 2)
Quarter: 2025Q3

REPORT INFORMATION
  Report Type: Report from Study
  Country: US (occurrence: US)
  Receive Date: 20240717
  Receipt Date: 20250722
  Transmission Date: 20251021
  Serious: No
  Sender: ALEXION PHARMACEUTICALS
  Company Number: US-AstraZeneca-CH-00663953A

PATIENT

DRUGS (1)
  1. ULTOMIRIS [Suspect]
     Active Substance: RAVULIZUMAB-CWVZ
     Route: 065

REACTIONS (5)
  - Therapeutic response shortened [Unknown]
  - Eyelid ptosis [Unknown]
  - Weight decreased [Unknown]
  - Blood pressure increased [Unknown]
  - Asthenia [Unknown]
